FAERS Safety Report 16550880 (Version 1)
Quarter: 2019Q3

REPORT INFORMATION
  Report Type: Spontaneous
  Country: US (occurrence: US)
  Receive Date: 20190709
  Receipt Date: 20190709
  Transmission Date: 20191004
  Serious: Yes (Hospitalization)
  Sender: FDA-Public Use
  Company Number: None

PATIENT
  Age: 76 Year
  Sex: Female

DRUGS (12)
  1. FLAXSEED [Concomitant]
     Active Substance: FLAX SEED
  2. MULTI VITAMIN [Concomitant]
     Active Substance: VITAMINS
  3. DALFAMPRIDINE. [Suspect]
     Active Substance: DALFAMPRIDINE
     Indication: MULTIPLE SCLEROSIS
     Dosage: ?          OTHER FREQUENCY:EVERY 12 HOURS;?
     Route: 048
     Dates: start: 20181211
  4. CARVEDILOL. [Concomitant]
     Active Substance: CARVEDILOL
  5. FISH OIL [Concomitant]
     Active Substance: FISH OIL
  6. AMLODIPINE [Concomitant]
     Active Substance: AMLODIPINE BESYLATE
  7. CRANBERRY. [Concomitant]
     Active Substance: CRANBERRY
  8. ESCITALOPRAM [Concomitant]
     Active Substance: ESCITALOPRAM OXALATE
  9. EZETIMBE [Concomitant]
     Active Substance: EZETIMIBE
  10. LEXAPRO [Concomitant]
     Active Substance: ESCITALOPRAM OXALATE
  11. METFORMIN [Concomitant]
     Active Substance: METFORMIN HYDROCHLORIDE
  12. APAP/CODEINE [Concomitant]
     Active Substance: ACETAMINOPHEN\CODEINE PHOSPHATE

REACTIONS (3)
  - Therapy cessation [None]
  - Infection [None]
  - Hospitalisation [None]
